FAERS Safety Report 9336477 (Version 1)
Quarter: 2013Q2

REPORT INFORMATION
  Report Type: Report from Study
  Country: MX (occurrence: MX)
  Receive Date: 20130607
  Receipt Date: 20130607
  Transmission Date: 20140414
  Serious: Yes (Death, Other)
  Sender: FDA-Public Use
  Company Number: MX-ROCHE-1233918

PATIENT
  Age: 62 Year
  Sex: Female
  Weight: 68 kg

DRUGS (6)
  1. HERCEPTIN [Suspect]
     Indication: BREAST CANCER METASTATIC
     Route: 065
     Dates: start: 20081111, end: 20100407
  2. HERCEPTIN [Suspect]
     Route: 065
     Dates: start: 20120720, end: 20121206
  3. PACLITAXEL [Concomitant]
     Indication: BREAST CANCER METASTATIC
     Route: 065
     Dates: start: 20081111, end: 20100407
  4. CYCLOPHOSPHAMIDE [Concomitant]
     Indication: BREAST CANCER METASTATIC
     Route: 065
     Dates: start: 20081111, end: 20100407
  5. DOXORUBICIN [Concomitant]
     Indication: BREAST CANCER METASTATIC
     Route: 065
     Dates: start: 20081111, end: 20100407
  6. DOCETAXEL [Concomitant]
     Indication: BREAST CANCER METASTATIC
     Route: 065
     Dates: start: 20120720, end: 20121206

REACTIONS (2)
  - Death [Fatal]
  - Neutropenia [Unknown]
